FAERS Safety Report 6583911-0 (Version None)
Quarter: 2010Q1

REPORT INFORMATION
  Report Type: 
  Country: None (occurrence: None)
  Receive Date: 20100216
  Receipt Date: 20091119
  Transmission Date: 20100710
  Serious: No
  Sender: FDA-Public Use
  Company Number: US-ABBOTT-09P-163-0610844-00

PATIENT
  Age: 65 Year
  Sex: Female
  Weight: 51.302 kg

DRUGS (10)
  1. SIMCOR [Suspect]
     Indication: BLOOD CHOLESTEROL INCREASED
     Dosage: 1000MG/20MG TABLET AT HOUR OF SLEEP
     Route: 048
     Dates: start: 20091116
  2. SIMCOR [Suspect]
     Dosage: 500MG/20MG TABLET AT HOUR OF SLEEP
     Route: 048
     Dates: end: 20091115
  3. METFORMIN HCL [Concomitant]
     Indication: DIABETES MELLITUS
  4. METOPROLOL TARTRATE [Concomitant]
     Indication: DRUG USE FOR UNKNOWN INDICATION
     Dosage: DAILY IN THE MORNING
     Route: 048
  5. BUMETANIDE [Concomitant]
     Indication: DRUG USE FOR UNKNOWN INDICATION
     Dosage: DAILY IN THE MORNING
     Route: 048
  6. LANOXIN [Concomitant]
     Indication: DRUG USE FOR UNKNOWN INDICATION
     Route: 048
  7. FENOFIBRATE [Concomitant]
     Indication: DRUG USE FOR UNKNOWN INDICATION
     Route: 048
  8. COUMADIN [Concomitant]
     Indication: DRUG USE FOR UNKNOWN INDICATION
     Dosage: 1 TAB TUES, THURS, SAT
     Route: 048
  9. COUMADIN [Concomitant]
     Dosage: 1.5 TAB SUN, MON, WED AND FRI
     Route: 048
  10. GLIMEPIRIDE [Concomitant]
     Indication: DRUG USE FOR UNKNOWN INDICATION
     Dosage: IN THE MORNING
     Route: 048

REACTIONS (5)
  - BURNING SENSATION [None]
  - FEELING HOT [None]
  - INSOMNIA [None]
  - PRURITUS [None]
  - SCRATCH [None]
